FAERS Safety Report 25929985 (Version 1)
Quarter: 2025Q4

REPORT INFORMATION
  Report Type: Spontaneous
  Country: EU (occurrence: EU)
  Receive Date: 20251016
  Receipt Date: 20251016
  Transmission Date: 20260117
  Serious: Yes (Other)
  Sender: TEVA
  Company Number: None

PATIENT
  Age: 83 Year
  Sex: Female
  Weight: 60 kg

DRUGS (3)
  1. MIRTAZAPINE [Suspect]
     Active Substance: MIRTAZAPINE
     Indication: Depression
     Dosage: 15 MG IN THE EVENING, THEN 30 MG FROM 05/20
     Route: 048
     Dates: start: 20250509, end: 20250521
  2. PAROXETINE [Suspect]
     Active Substance: PAROXETINE
     Indication: Depression
     Dosage: 20 MG, THEN 10 MG FROM 10/05; PAROXETINE BASE
     Route: 048
     Dates: end: 20250517
  3. MORPHINE [Suspect]
     Active Substance: MORPHINE
     Indication: Wound
     Dosage: 1 MG/H, THEN FROM 11/05 1.2 MG/H, THEN FROM 13/05: 1.4 MG/H BOLUS: 3 MG PR: 60 MIN 16 MG MAX/24H
     Route: 042
     Dates: start: 20250509, end: 20250519

REACTIONS (2)
  - Confusional state [Recovered/Resolved]
  - Hallucination, visual [Recovered/Resolved]

NARRATIVE: CASE EVENT DATE: 20250516
